FAERS Safety Report 4264800-3 (Version None)
Quarter: 2004Q1

REPORT INFORMATION
  Report Type: 
  Country: None (occurrence: None)
  Receive Date: 20040105
  Receipt Date: 20031124
  Transmission Date: 20041129
  Serious: Yes (Hospitalization, Other)
  Sender: FDA-Public Use
  Company Number: C2003-3109.01

PATIENT
  Age: 77 Year
  Sex: Male

DRUGS (6)
  1. EXTENDED PHENYTOIN SODIUM [Suspect]
     Indication: COMPLEX PARTIAL SEIZURES
     Dosage: 300 MG Q HS, ORAL
     Route: 048
     Dates: start: 20031025, end: 20031122
  2. SERTRALINE HCL [Concomitant]
  3. LABETALOL HCL [Concomitant]
  4. TIZANIDINE HCL [Concomitant]
  5. ASPIRIN [Concomitant]
  6. VALSARTAN/HCTZ [Concomitant]

REACTIONS (6)
  - CONVULSION [None]
  - DRUG LEVEL BELOW THERAPEUTIC [None]
  - DYSPNOEA [None]
  - HEART RATE IRREGULAR [None]
  - MOUTH HAEMORRHAGE [None]
  - TONGUE BITING [None]
